FAERS Safety Report 16060250 (Version 2)
Quarter: 2020Q2

REPORT INFORMATION
  Report Type: Other
  Country: CA (occurrence: CA)
  Receive Date: 20190312
  Receipt Date: 20200616
  Transmission Date: 20200713
  Serious: Yes (Life-Threatening, Hospitalization, Other)
  Sender: FDA-Public Use
  Company Number: CA-APOTEX-2019AP008976

PATIENT
  Age: 41 Year
  Sex: Female

DRUGS (11)
  1. ZOPICLONE [Suspect]
     Active Substance: ZOPICLONE
     Indication: SUICIDE ATTEMPT
     Dosage: 45 MG, UNK
     Route: 048
  2. NOVORAPID [Suspect]
     Active Substance: INSULIN ASPART
     Indication: SUICIDE ATTEMPT
     Dosage: 300 UNITS, UNK
     Route: 058
  3. ZOPICLONE [Suspect]
     Active Substance: ZOPICLONE
     Indication: PRODUCT USED FOR UNKNOWN INDICATION
     Dosage: UNK
     Route: 048
  4. CLONAZEPAM. [Suspect]
     Active Substance: CLONAZEPAM
     Indication: PRODUCT USED FOR UNKNOWN INDICATION
     Dosage: 2 MG, UNK
     Route: 048
  5. GLUCOSE [Suspect]
     Active Substance: DEXTROSE
     Dosage: 12 DF, UNK
     Route: 042
  6. NOVORAPID [Suspect]
     Active Substance: INSULIN ASPART
     Indication: PRODUCT USED FOR UNKNOWN INDICATION
  7. GLUCOSE [Suspect]
     Active Substance: DEXTROSE
     Indication: PRODUCT USED FOR UNKNOWN INDICATION
     Dosage: 2000 ML, UNK
     Route: 042
  8. GLUCOSE [Suspect]
     Active Substance: DEXTROSE
     Dosage: 50 ML, UNK
     Route: 042
  9. RIVOTRIL [Suspect]
     Active Substance: CLONAZEPAM
     Indication: PRODUCT USED FOR UNKNOWN INDICATION
     Dosage: 2 MG, UNK
     Route: 048
  10. DEXTROSE. [Suspect]
     Active Substance: DEXTROSE
     Indication: HYPOGLYCAEMIA
     Dosage: 10 %, UNK
     Route: 041
  11. DEXTROSE. [Suspect]
     Active Substance: DEXTROSE
     Dosage: 50 %, UNK
     Route: 065

REACTIONS (10)
  - Intentional overdose [Recovered/Resolved]
  - Lethargy [Recovered/Resolved]
  - Suicide attempt [Recovered/Resolved]
  - Hypoglycaemia [Recovered/Resolved]
  - Hyperhidrosis [Recovered/Resolved]
  - Oedema peripheral [Recovered/Resolved]
  - Blood potassium decreased [Recovered/Resolved]
  - Somnolence [Recovered/Resolved]
  - Blood pressure decreased [Recovered/Resolved]
  - Ataxia [Recovered/Resolved]
